FAERS Safety Report 4426573-0 (Version None)
Quarter: 2004Q3

REPORT INFORMATION
  Report Type: 
  Country: None (occurrence: None)
  Receive Date: 20040816
  Receipt Date: 20040804
  Transmission Date: 20050211
  Serious: Yes (Death)
  Sender: FDA-Public Use
  Company Number: HU-JNJFOC-20040707847

PATIENT
  Sex: Female

DRUGS (1)
  1. CAELYX [Suspect]
     Dosage: 100 MG X 3 CYCLES
     Route: 042

REACTIONS (2)
  - PNEUMONIA [None]
  - PULMONARY EMBOLISM [None]
